FAERS Safety Report 7226322 (Version 2)
Quarter: 2013Q4

REPORT INFORMATION
  Report Type: Spontaneous
  Country: US (occurrence: US)
  Receive Date: 20091222
  Receipt Date: 20131018
  Transmission Date: 20140711
  Serious: Yes (Other)
  Sender: FDA-Public Use
  Company Number: US-ASTRAZENECA-2009SE18272

PATIENT
  Age: 69 Year
  Sex: Female
  Weight: 62.1 kg

DRUGS (7)
  1. ATENOLOL [Suspect]
     Indication: EXTRASYSTOLES
     Route: 065
  2. ARIMIDEX [Suspect]
     Indication: BREAST CANCER FEMALE
     Dosage: DAILY
     Route: 048
     Dates: start: 2008, end: 2009
  3. CRESTOR [Suspect]
     Indication: LIPIDS INCREASED
     Route: 048
     Dates: start: 2009, end: 20131002
  4. COQ10 [Concomitant]
     Indication: ADJUVANT THERAPY
  5. MAGNESIUM SUPPLEMENT [Concomitant]
  6. LIPITOR [Concomitant]
  7. TRIAMHYDROCHLOROTHIAZIDE [Concomitant]
     Dosage: 75 50 MG ONE HALF TABLET DAILY FOR ABOUT 1 AND HALF YEARS

REACTIONS (23)
  - Breast cancer [Unknown]
  - Feeling abnormal [Recovered/Resolved]
  - Central obesity [Recovered/Resolved]
  - Musculoskeletal discomfort [Recovered/Resolved]
  - Osteoarthritis [Recovered/Resolved]
  - Pain [Unknown]
  - Body height decreased [Unknown]
  - Fluid retention [Unknown]
  - Stress [Unknown]
  - Quality of life decreased [Unknown]
  - Muscle spasms [Unknown]
  - Hot flush [Not Recovered/Not Resolved]
  - Myalgia [Unknown]
  - Arthralgia [Recovered/Resolved]
  - Muscle spasms [Unknown]
  - Musculoskeletal pain [Unknown]
  - Feeling abnormal [Recovered/Resolved]
  - Hepatic enzyme increased [Unknown]
  - Blood creatine phosphokinase increased [Unknown]
  - Insomnia [Unknown]
  - Aspartate aminotransferase increased [Unknown]
  - Alanine aminotransferase increased [Unknown]
  - Intentional drug misuse [Not Recovered/Not Resolved]
